FAERS Safety Report 20517359 (Version 5)
Quarter: 2022Q2

REPORT INFORMATION
  Report Type: Spontaneous
  Country: JP (occurrence: JP)
  Receive Date: 20220225
  Receipt Date: 20220527
  Transmission Date: 20220721
  Serious: Yes (Other)
  Sender: FDA-Public Use
  Company Number: JP-ONO-2022JP005067

PATIENT
  Age: 58 Year
  Sex: Male

DRUGS (5)
  1. OPDIVO [Suspect]
     Active Substance: NIVOLUMAB
     Indication: Non-small cell lung cancer recurrent
     Dosage: UNK
     Route: 041
  2. YERVOY [Suspect]
     Active Substance: IPILIMUMAB
     Indication: Non-small cell lung cancer recurrent
     Dosage: UNK
     Route: 041
  3. CARBOPLATIN [Suspect]
     Active Substance: CARBOPLATIN
     Indication: Non-small cell lung cancer recurrent
     Dosage: UNK
     Route: 065
  4. PACLITAXEL [Suspect]
     Active Substance: PACLITAXEL
     Indication: Non-small cell lung cancer recurrent
     Dosage: UNK
     Route: 065
  5. UNSPECIFIED INGREDIENT [Concomitant]
     Active Substance: UNSPECIFIED INGREDIENT
     Indication: Cancer pain
     Dosage: UNK
     Route: 065

REACTIONS (11)
  - Myelosuppression [Unknown]
  - Delirium [Recovering/Resolving]
  - Interstitial lung disease [Recovering/Resolving]
  - Intestinal obstruction [Unknown]
  - Febrile neutropenia [Unknown]
  - Pulmonary toxicity [Recovering/Resolving]
  - Thrombocytopenia [Unknown]
  - Hypokalaemia [Unknown]
  - Anaemia [Unknown]
  - Diarrhoea [Unknown]
  - Performance status decreased [Unknown]
